FAERS Safety Report 4740326-5 (Version None)
Quarter: 2005Q3

REPORT INFORMATION
  Report Type: 
  Country: None (occurrence: None)
  Receive Date: 20050809
  Receipt Date: 20050809
  Transmission Date: 20060218
  Serious: Yes (Life-Threatening, Hospitalization)
  Sender: FDA-Public Use
  Company Number: None

PATIENT
  Age: 77 Year
  Sex: Female
  Weight: 53 kg

DRUGS (10)
  1. SENSIPAR [Suspect]
     Indication: HYPERPARATHYROIDISM PRIMARY
     Dosage: 30 MG ONCE DAILY ORAL
     Route: 048
     Dates: start: 20040701, end: 20050808
  2. ALENDRONATE [Concomitant]
  3. COREG [Concomitant]
  4. ALTACE [Concomitant]
  5. ERGOCALCIFEROL [Concomitant]
  6. BUSPAR [Concomitant]
  7. NEOSYNEPHRINE [Concomitant]
  8. SINAMET [Concomitant]
  9. ARIMIDEX [Concomitant]
  10. FLONASE [Concomitant]

REACTIONS (3)
  - ACUTE MYOCARDIAL INFARCTION [None]
  - CORONARY ARTERY DISEASE [None]
  - VASOSPASM [None]
